FAERS Safety Report 7022491-2 (Version None)
Quarter: 2010Q3

REPORT INFORMATION
  Report Type: 
  Country: None (occurrence: None)
  Receive Date: 20100930
  Receipt Date: 20100929
  Transmission Date: 20110219
  Serious: Yes (Hospitalization)
  Sender: FDA-Public Use
  Company Number: CO-ROCHE-730002

PATIENT
  Sex: Female

DRUGS (1)
  1. CELLCEPT [Suspect]
     Dosage: FREQUENCY : QD
     Route: 048
     Dates: start: 20080618

REACTIONS (1)
  - COUGH [None]
